FAERS Safety Report 6617476-1 (Version None)
Quarter: 2010Q1

REPORT INFORMATION
  Report Type: 
  Country: None (occurrence: None)
  Receive Date: 20100308
  Receipt Date: 20100222
  Transmission Date: 20100710
  Serious: Yes (Hospitalization)
  Sender: FDA-Public Use
  Company Number: US-JNJFOC-20100210421

PATIENT
  Sex: Female
  Weight: 75.3 kg

DRUGS (4)
  1. DURAGESIC-100 [Suspect]
     Indication: BACK PAIN
     Route: 062
  2. DURAGESIC-100 [Suspect]
     Route: 062
  3. ROXICODONE [Suspect]
     Indication: PAIN
     Route: 048
  4. LYRICA [Concomitant]
     Indication: PAIN
     Route: 048

REACTIONS (7)
  - CONSTIPATION [None]
  - FATIGUE [None]
  - INADEQUATE ANALGESIA [None]
  - INCORRECT DRUG ADMINISTRATION RATE [None]
  - MYOCARDIAL INFARCTION [None]
  - PANIC ATTACK [None]
  - ULCER [None]
